FAERS Safety Report 9399174 (Version 2)
Quarter: 2013Q3

REPORT INFORMATION
  Report Type: Spontaneous
  Country: NC (occurrence: FR)
  Receive Date: 20130715
  Receipt Date: 20130801
  Transmission Date: 20140515
  Serious: Yes (Disabling)
  Sender: FDA-Public Use
  Company Number: NC-ASTRAZENECA-2013SE51745

PATIENT
  Age: 58 Year
  Sex: Male
  Weight: 80 kg

DRUGS (2)
  1. CRESTOR [Suspect]
     Indication: HYPERCHOLESTEROLAEMIA
     Route: 048
     Dates: start: 2005
  2. INEXIUM [Concomitant]
     Indication: GASTROOESOPHAGEAL REFLUX DISEASE
     Route: 048
     Dates: start: 2009

REACTIONS (4)
  - Tendonitis [Unknown]
  - Tenotomy [Unknown]
  - Muscle rupture [Recovered/Resolved with Sequelae]
  - Muscle rupture [Recovered/Resolved]
